FAERS Safety Report 4561315-X (Version None)
Quarter: 2005Q1

REPORT INFORMATION
  Report Type: 
  Country: None (occurrence: None)
  Receive Date: 20050121
  Receipt Date: 20041130
  Transmission Date: 20050727
  Serious: Yes (Life-Threatening)
  Sender: FDA-Public Use
  Company Number: BRO-007668

PATIENT
  Age: 5 Year
  Sex: Male

DRUGS (2)
  1. GADOTERIDOL/PROHANCE (BATCH #(S): UNK), PROPOFOL / PROPOFOL (BATCH #(S [Suspect]
     Indication: GENERAL ANAESTHESIA
     Dosage: 5.4 ML, SY
  2. PROPOFOL [Suspect]
     Indication: GENERAL ANAESTHESIA
     Dosage: SY

REACTIONS (4)
  - COMA [None]
  - CSF TEST ABNORMAL [None]
  - DELAYED RECOVERY FROM ANAESTHESIA [None]
  - PHARMACEUTICAL PRODUCT COMPLAINT [None]
